FAERS Safety Report 10032252 (Version 1)
Quarter: 2014Q1

REPORT INFORMATION
  Report Type: Report from Study
  Country: US (occurrence: US)
  Receive Date: 20140324
  Receipt Date: 20140324
  Transmission Date: 20141002
  Serious: Yes (Hospitalization, Other)
  Sender: FDA-Public Use
  Company Number: US-GLAXOSMITHKLINE-A1061466A

PATIENT
  Age: 63 Year
  Sex: Female
  Weight: 72.6 kg

DRUGS (16)
  1. OFATUMUMAB [Suspect]
     Indication: CHRONIC LYMPHOCYTIC LEUKAEMIA
     Dosage: 1000MG MONTHLY
     Route: 042
     Dates: start: 20131003
  2. INVESTIGATIONAL STUDY DRUG [Suspect]
     Indication: CHRONIC LYMPHOCYTIC LEUKAEMIA
     Dosage: 150MG TWICE PER DAY
     Route: 048
     Dates: start: 20131003
  3. DEXAMETHASONE [Suspect]
     Indication: PREMEDICATION
  4. FEBUXOSTAT [Concomitant]
     Dates: start: 20131002
  5. ACICLOVIR [Concomitant]
     Dates: start: 20131002
  6. AMLODIPINE [Concomitant]
     Dates: start: 20130927
  7. PANTOPRAZOLE [Concomitant]
     Dates: start: 20131002
  8. LEVOTHYROXINE [Concomitant]
     Dates: start: 20130930
  9. GABAPENTIN [Concomitant]
     Dates: start: 20131004
  10. VENLAFAXINE HYDROCHLORIDE [Concomitant]
     Dates: start: 20130920
  11. BACTRIM DS [Concomitant]
     Dates: start: 20131017
  12. PREDNISOLONE ACETATE [Concomitant]
     Dates: start: 20131101
  13. REFRESH [Concomitant]
     Dates: start: 20131015
  14. LORAZEPAM [Concomitant]
     Dates: start: 20131010
  15. NORTRIPTYLINE [Concomitant]
     Dates: start: 20131119
  16. CHLORHEXIDINE [Concomitant]
     Dates: start: 20131002

REACTIONS (2)
  - Pneumonia [Recovered/Resolved]
  - Pneumonitis [Recovered/Resolved]
